FAERS Safety Report 12203927 (Version 1)
Quarter: 2016Q1

REPORT INFORMATION
  Report Type: Spontaneous
  Country: US (occurrence: None)
  Receive Date: 20160322
  Receipt Date: 20160322
  Transmission Date: 20160526
  Serious: No
  Sender: FDA-Public Use
  Company Number: None

PATIENT
  Age: 36 Year
  Sex: Female
  Weight: 73.48 kg

DRUGS (1)
  1. ROPIVICAINE [Suspect]
     Active Substance: ROPIVACAINE

REACTIONS (6)
  - Toxicity to various agents [None]
  - Hypoaesthesia oral [None]
  - Agitation [None]
  - Irritability [None]
  - Device issue [None]
  - Incorrect dose administered [None]

NARRATIVE: CASE EVENT DATE: 20151124
